FAERS Safety Report 15596462 (Version 2)
Quarter: 2018Q4

REPORT INFORMATION
  Report Type: Spontaneous
  Country: FR (occurrence: FR)
  Receive Date: 20181108
  Receipt Date: 20181116
  Transmission Date: 20190205
  Serious: Yes (Other)
  Sender: FDA-Public Use
  Company Number: FR-TEVA-2018-FR-972037

PATIENT
  Age: 55 Year
  Sex: Male
  Weight: 80 kg

DRUGS (16)
  1. CAMPTO [Suspect]
     Active Substance: IRINOTECAN
     Indication: COLORECTAL ADENOCARCINOMA
     Route: 041
     Dates: start: 20170523
  2. EMEND [Concomitant]
     Active Substance: APREPITANT
     Route: 048
     Dates: start: 20170524, end: 201709
  3. ZOPHREN 8 MG, COMPRIM? PELLICUL? [Concomitant]
     Route: 048
     Dates: start: 20170524
  4. DOXYCYCLINE. [Concomitant]
     Active Substance: DOXYCYCLINE
     Dosage: 100 MILLIGRAM DAILY;
     Route: 048
     Dates: start: 20170524
  5. IMODIUM 2 MG, G?LULE [Concomitant]
     Route: 048
     Dates: start: 20170524
  6. FLUOROURACILE [Suspect]
     Active Substance: FLUOROURACIL
     Indication: COLORECTAL ADENOCARCINOMA
     Route: 041
     Dates: start: 20170523
  7. PRIMPERAN [Concomitant]
     Active Substance: METOCLOPRAMIDE HYDROCHLORIDE
     Dosage: 30 MILLIGRAM DAILY;
     Route: 048
     Dates: start: 20170524
  8. TIORFAN 100 MG, G?LULE [Concomitant]
     Active Substance: RACECADOTRIL
     Route: 048
     Dates: start: 20170622
  9. EMEND [Concomitant]
     Active Substance: APREPITANT
     Route: 048
     Dates: start: 20170524
  10. INNOHEP [Concomitant]
     Active Substance: TINZAPARIN SODIUM
     Dosage: 12000 IU (INTERNATIONAL UNIT) DAILY;
     Route: 058
     Dates: start: 20171002
  11. ERBITUX [Suspect]
     Active Substance: CETUXIMAB
     Indication: COLORECTAL ADENOCARCINOMA
     Route: 041
     Dates: start: 20170523
  12. ZOPHREN 8 MG/4 ML, SOLUTION INJECTABLE EN SERINGUE PR?-REMPLIE [Concomitant]
     Route: 041
     Dates: start: 20180523
  13. CHLORHYDRATE DE TRAMADOL [Concomitant]
     Active Substance: TRAMADOL HYDROCHLORIDE
     Route: 048
     Dates: start: 20170616
  14. ELVORINE [Concomitant]
     Active Substance: LEUCOVORIN CALCIUM
     Indication: COLORECTAL ADENOCARCINOMA
     Route: 041
     Dates: start: 20180523
  15. POLARAMINE 5 MG/1 ML, SOLUTION INJECTABLE [Concomitant]
     Route: 041
     Dates: start: 20180523
  16. SOLU-MEDROL [Concomitant]
     Active Substance: METHYLPREDNISOLONE SODIUM SUCCINATE
     Route: 040
     Dates: start: 20180523

REACTIONS (2)
  - Generalised tonic-clonic seizure [Recovered/Resolved]
  - Hypomagnesaemia [Not Recovered/Not Resolved]

NARRATIVE: CASE EVENT DATE: 20180829
